FAERS Safety Report 19989175 (Version 2)
Quarter: 2022Q1

REPORT INFORMATION
  Report Type: Spontaneous
  Country: DE (occurrence: DE)
  Receive Date: 20211025
  Receipt Date: 20220127
  Transmission Date: 20220423
  Serious: Yes (Hospitalization)
  Sender: FDA-Public Use
  Company Number: DE-TAKEDA-DE202032376

PATIENT
  Age: 39 Year
  Sex: Male
  Weight: 70 kg

DRUGS (17)
  1. PANTOPRAZOLE [Suspect]
     Active Substance: PANTOPRAZOLE
     Indication: Prophylaxis
     Dosage: 40 MILLIGRAM, ONCE A DAY (40 MILLIGRAM, QD)
     Route: 048
  2. PANTOPRAZOLE [Suspect]
     Active Substance: PANTOPRAZOLE
     Dosage: 40 MILLIGRAM
     Route: 048
  3. PARATHYROID HORMONE [Suspect]
     Active Substance: PARATHYROID HORMONE
     Indication: Hypoparathyroidism
     Dosage: 100 MICROGRAM, ONCE A DAY (100 MICROGRAM, QD)
     Route: 058
     Dates: start: 20200705
  4. PARATHYROID HORMONE [Suspect]
     Active Substance: PARATHYROID HORMONE
     Dosage: 100 MICROGRAM, ONCE A DAY (100 MICROGRAM, 1X/DAY:QD)
     Route: 058
     Dates: start: 20200705
  5. ARANESP [Concomitant]
     Active Substance: DARBEPOETIN ALFA
     Indication: Dialysis
     Dosage: 100 MICROGRAM, EVERY WEEK (50 MICROGRAM, 2/WEEK)
     Route: 042
  6. ARANESP [Concomitant]
     Active Substance: DARBEPOETIN ALFA
     Indication: Renal failure
  7. SODIUM BICARBONATE [Concomitant]
     Active Substance: SODIUM BICARBONATE
     Indication: Renal failure
     Dosage: 2 GRAM, ONCE A DAY (1 GRAM, TUE, THU, SAT, SUN )
     Route: 048
  8. CALCITRIOL [Concomitant]
     Active Substance: CALCITRIOL
     Indication: Hypoparathyroidism
     Dosage: 10 MICROGRAM, ONCE A DAY (5 MICROGRAM, BID)
     Route: 048
  9. CALCIUM [Concomitant]
     Active Substance: CALCIUM
     Indication: Hypoparathyroidism
     Dosage: 500 MILLIGRAM, 3 TIMES A DAY (500 MILLIGRAM, THREE TIMES A DAY (MON, WED, FRI))
     Route: 048
  10. CEFACLOR [Concomitant]
     Active Substance: CEFACLOR
     Indication: Renal failure
     Dosage: 200 MICROGRAM, EVERY WEEK (100 MICROGRAM, 2/WEEK)
     Route: 065
  11. CEFACLOR [Concomitant]
     Active Substance: CEFACLOR
     Indication: Dialysis
  12. FOSRENOL [Concomitant]
     Active Substance: LANTHANUM CARBONATE
     Indication: Renal failure
     Dosage: 750 MILLIGRAM
     Route: 048
  13. FUROSEMIDE [Concomitant]
     Active Substance: FUROSEMIDE
     Indication: Renal failure
     Dosage: 500 MILLIGRAM
     Route: 048
  14. HYDROCHLOROTHIAZIDE [Concomitant]
     Active Substance: HYDROCHLOROTHIAZIDE
     Indication: Renal failure
     Dosage: 25 MILLIGRAM, ONCE A DAY (25 MILLIGRAM, QD)
     Route: 048
  15. MAGNESIUM [Concomitant]
     Active Substance: MAGNESIUM
     Indication: Hypoparathyroidism
     Dosage: 800 MILLIGRAM, ONCE A DAY (400 MILLIGRAM, BID)
     Route: 048
  16. RAMIPRIL [Concomitant]
     Active Substance: RAMIPRIL
     Indication: Hypertension
     Dosage: 2.5 MILLIGRAM, ONCE A DAY (2.5 MILLIGRAM, QD)
     Route: 048
  17. VITAMINS NOS [Concomitant]
     Active Substance: VITAMINS
     Indication: Renal failure
     Dosage: UNK UNK, ONCE A DAY (BID)
     Route: 048

REACTIONS (5)
  - Pain in extremity [Recovered/Resolved]
  - Tendon rupture [Recovered/Resolved]
  - Blood calcium decreased [Recovered/Resolved]
  - Product dose omission issue [Recovered/Resolved]
  - Therapy interrupted [Not Recovered/Not Resolved]

NARRATIVE: CASE EVENT DATE: 20200930
